FAERS Safety Report 6804921-1 (Version None)
Quarter: 2010Q2

REPORT INFORMATION
  Report Type: 
  Country: None (occurrence: None)
  Receive Date: 20100628
  Receipt Date: 20070707
  Transmission Date: 20101027
  Serious: Yes (Other)
  Sender: FDA-Public Use
  Company Number: US-PFIZER INC-2007047952

PATIENT
  Sex: Male
  Weight: 90.7 kg

DRUGS (3)
  1. GEODON [Suspect]
     Indication: BIPOLAR DISORDER
     Dates: start: 20070605, end: 20070606
  2. XANAX [Concomitant]
  3. CAMPRAL [Concomitant]

REACTIONS (8)
  - AMNESIA [None]
  - BLOOD PRESSURE INCREASED [None]
  - CONVULSION [None]
  - DIZZINESS [None]
  - DYSPNOEA [None]
  - MUSCLE SPASMS [None]
  - PALPITATIONS [None]
  - PANIC REACTION [None]
